FAERS Safety Report 20286433 (Version 2)
Quarter: 2022Q1

REPORT INFORMATION
  Report Type: Report from Study
  Country: KR (occurrence: KR)
  Receive Date: 20220103
  Receipt Date: 20220120
  Transmission Date: 20220423
  Serious: Yes (Death, Other)
  Sender: FDA-Public Use
  Company Number: KR-BRISTOL-MYERS SQUIBB COMPANY-BMS-2021-144319

PATIENT
  Age: 48 Year
  Sex: Male

DRUGS (2)
  1. IPILIMUMAB [Suspect]
     Active Substance: IPILIMUMAB
     Indication: Mesothelioma malignant
     Dosage: 100/20 MG/ML ONCE
     Route: 042
     Dates: start: 20211209, end: 20211209
  2. OPDIVO [Suspect]
     Active Substance: NIVOLUMAB
     Indication: Mesothelioma malignant
     Dosage: 200/20 MG/ML ONCE
     Route: 042
     Dates: start: 20211209, end: 20211209

REACTIONS (1)
  - Death [Fatal]

NARRATIVE: CASE EVENT DATE: 20211221
